FAERS Safety Report 9488491 (Version 1)
Quarter: 2013Q3

REPORT INFORMATION
  Report Type: Spontaneous
  Country: US (occurrence: US)
  Receive Date: 20130829
  Receipt Date: 20130829
  Transmission Date: 20140515
  Serious: Yes (Hospitalization)
  Sender: FDA-Public Use
  Company Number: US-B.I. PHARMACEUTICALS,INC./RIDGEFIELD-2013-BI-26445BP

PATIENT
  Age: 77 Year
  Sex: Male

DRUGS (5)
  1. SPIRIVA [Suspect]
     Indication: CHRONIC OBSTRUCTIVE PULMONARY DISEASE
     Dosage: 18 MCG
     Route: 055
     Dates: start: 2013
  2. MAGNESIUM [Concomitant]
     Indication: CARDIAC DISORDER
  3. POTASSIUM [Concomitant]
     Indication: CARDIAC DISORDER
     Route: 048
  4. GABAPENTIN [Concomitant]
     Route: 048
  5. SOTALOL [Concomitant]
     Indication: CARDIAC DISORDER
     Route: 048

REACTIONS (1)
  - Heart rate irregular [Not Recovered/Not Resolved]
